FAERS Safety Report 10742431 (Version 1)
Quarter: 2015Q1

REPORT INFORMATION
  Report Type: Report from Study
  Country: US (occurrence: US)
  Receive Date: 20150127
  Receipt Date: 20150127
  Transmission Date: 20150721
  Serious: Yes (Other)
  Sender: FDA-Public Use
  Company Number: US-MYLANLABS-2015M1001605

PATIENT

DRUGS (3)
  1. TACROLIMUS. [Suspect]
     Active Substance: TACROLIMUS
     Indication: IMMUNOSUPPRESSANT DRUG THERAPY
     Route: 065
  2. XELODA [Suspect]
     Active Substance: CAPECITABINE
     Indication: PROPHYLAXIS
     Dosage: OVER 24 MO PERIOD: AVERAGE 11.5MG/KG DIVIDED INTO 2 DAILY DOSES GIVEN ON D1-14 OF 21D CYCLE
     Route: 048
  3. SIROLIMUS. [Suspect]
     Active Substance: SIROLIMUS
     Indication: IMMUNOSUPPRESSANT DRUG THERAPY
     Route: 065

REACTIONS (3)
  - Diarrhoea [Recovering/Resolving]
  - Skin cancer [Recovering/Resolving]
  - Fatigue [Recovering/Resolving]
